FAERS Safety Report 26129964 (Version 2)
Quarter: 2025Q4

REPORT INFORMATION
  Report Type: Spontaneous
  Country: US (occurrence: US)
  Receive Date: 20251208
  Receipt Date: 20251217
  Transmission Date: 20260117
  Serious: No
  Sender: ELI LILLY AND COMPANY
  Company Number: US-ELI_LILLY_AND_COMPANY-US202511030991

PATIENT
  Age: 60 Year
  Sex: Male

DRUGS (12)
  1. ZEPBOUND [Suspect]
     Active Substance: TIRZEPATIDE
     Indication: Metabolic syndrome
     Dosage: 15 MG, WEEKLY (1/W)
     Route: 058
     Dates: start: 2025
  2. ZEPBOUND [Suspect]
     Active Substance: TIRZEPATIDE
     Indication: Metabolic syndrome
     Dosage: 15 MG, WEEKLY (1/W)
     Route: 058
     Dates: start: 2025
  3. ZEPBOUND [Suspect]
     Active Substance: TIRZEPATIDE
     Indication: Metabolic syndrome
     Dosage: 15 MG, WEEKLY (1/W)
     Route: 058
     Dates: start: 2025
  4. ZEPBOUND [Suspect]
     Active Substance: TIRZEPATIDE
     Indication: Metabolic syndrome
     Dosage: 15 MG, WEEKLY (1/W)
     Route: 058
     Dates: start: 2025
  5. ZEPBOUND [Suspect]
     Active Substance: TIRZEPATIDE
     Indication: Sleep apnoea syndrome
     Dosage: 15 MG, WEEKLY (1/W)
     Route: 058
     Dates: start: 202508
  6. ZEPBOUND [Suspect]
     Active Substance: TIRZEPATIDE
     Indication: Sleep apnoea syndrome
     Dosage: 15 MG, WEEKLY (1/W)
     Route: 058
     Dates: start: 202508
  7. ZEPBOUND [Suspect]
     Active Substance: TIRZEPATIDE
     Indication: Sleep apnoea syndrome
     Dosage: 15 MG, WEEKLY (1/W)
     Route: 058
     Dates: start: 202508
  8. ZEPBOUND [Suspect]
     Active Substance: TIRZEPATIDE
     Indication: Sleep apnoea syndrome
     Dosage: 15 MG, WEEKLY (1/W)
     Route: 058
     Dates: start: 202508
  9. ZEPBOUND [Suspect]
     Active Substance: TIRZEPATIDE
     Indication: Body mass index increased
  10. ZEPBOUND [Suspect]
     Active Substance: TIRZEPATIDE
     Indication: Body mass index increased
  11. ZEPBOUND [Suspect]
     Active Substance: TIRZEPATIDE
     Indication: Body mass index increased
  12. ZEPBOUND [Suspect]
     Active Substance: TIRZEPATIDE
     Indication: Body mass index increased

REACTIONS (2)
  - Dyspepsia [Unknown]
  - Eructation [Unknown]

NARRATIVE: CASE EVENT DATE: 20251101
